FAERS Safety Report 14858960 (Version 11)
Quarter: 2019Q4

REPORT INFORMATION
  Report Type: Report from Study
  Country: CZ (occurrence: CZ)
  Receive Date: 20180508
  Receipt Date: 20191217
  Transmission Date: 20200122
  Serious: Yes (Hospitalization, Other)
  Sender: FDA-Public Use
  Company Number: PHHY2018CZ076455

PATIENT
  Age: 3 Year
  Sex: Male
  Weight: 17.6 kg

DRUGS (13)
  1. DABRAFENIB [Suspect]
     Active Substance: DABRAFENIB
     Dosage: UNK
     Route: 048
     Dates: start: 20181016, end: 20181210
  2. LEVELANZ [Concomitant]
     Active Substance: LEVETIRACETAM
     Indication: EPILEPSY
     Dosage: 875 MG, QD
     Route: 065
     Dates: start: 201901
  3. DABRAFENIB [Suspect]
     Active Substance: DABRAFENIB
     Indication: METASTATIC MALIGNANT MELANOMA
     Dosage: 40 MG, QD
     Route: 048
     Dates: start: 20180327, end: 20180427
  4. DABRAFENIB [Suspect]
     Active Substance: DABRAFENIB
     Dosage: 91 MG, QD
     Route: 048
  5. DEPAKINE [Concomitant]
     Active Substance: VALPROATE SODIUM
     Indication: EPILEPSY
     Dosage: 160 MG, QD
     Route: 065
     Dates: start: 2017
  6. DABRAFENIB [Suspect]
     Active Substance: DABRAFENIB
     Dosage: UNK
     Route: 048
     Dates: start: 20180605, end: 20181006
  7. TRAMETINIB [Suspect]
     Active Substance: TRAMETINIB
     Indication: BRAIN STEM GLIOMA
     Dosage: UNK
     Route: 048
     Dates: start: 20180511, end: 20180531
  8. TRAMETINIB [Suspect]
     Active Substance: TRAMETINIB
     Dosage: UNK
     Route: 048
     Dates: start: 20180605, end: 20181006
  9. DABRAFENIB [Suspect]
     Active Substance: DABRAFENIB
     Indication: BRAIN STEM GLIOMA
     Dosage: UNK
     Route: 048
     Dates: start: 20180511, end: 20180531
  10. TRAMETINIB [Suspect]
     Active Substance: TRAMETINIB
     Indication: METASTATIC MALIGNANT MELANOMA
     Dosage: 0.35 MG, QD
     Route: 048
     Dates: start: 20180327, end: 20180327
  11. TRAMETINIB [Suspect]
     Active Substance: TRAMETINIB
     Dosage: UNK
     Route: 048
     Dates: start: 20181016, end: 20181210
  12. TRAMETINIB [Suspect]
     Active Substance: TRAMETINIB
     Dosage: 0.53 UNK
     Route: 048
  13. DEPAKINE [Concomitant]
     Active Substance: VALPROATE SODIUM
     Dosage: 450 MG, QD
     Route: 065
     Dates: start: 2017

REACTIONS (20)
  - Nasopharyngitis [Recovered/Resolved]
  - Stridor [Unknown]
  - Dyspnoea [Unknown]
  - Pharyngitis [Unknown]
  - Tracheitis [Recovered/Resolved]
  - Pneumonia viral [Unknown]
  - Nasopharyngitis [Recovered/Resolved]
  - Laryngitis [Recovered/Resolved]
  - Respiratory syncytial virus bronchitis [Recovered/Resolved]
  - Fatigue [Unknown]
  - Hyperpyrexia [Recovered/Resolved]
  - Hyperpyrexia [Recovered/Resolved]
  - Cough [Not Recovered/Not Resolved]
  - Viral infection [Recovered/Resolved]
  - Pyrexia [Unknown]
  - Bronchitis [Recovered/Resolved]
  - Respiratory distress [Recovered/Resolved]
  - Lower respiratory tract infection [Recovered/Resolved]
  - Epilepsy [Unknown]
  - Urticaria [Recovered/Resolved]

NARRATIVE: CASE EVENT DATE: 20180425
